FAERS Safety Report 25741617 (Version 3)
Quarter: 2025Q4

REPORT INFORMATION
  Report Type: Spontaneous
  Country: US (occurrence: US)
  Receive Date: 20250829
  Receipt Date: 20251018
  Transmission Date: 20260117
  Serious: Yes (Other)
  Sender: ACCORD
  Company Number: US-Accord-502557

PATIENT
  Age: 71 Year
  Sex: Female
  Weight: 76.7 kg

DRUGS (8)
  1. CAPECITABINE [Suspect]
     Active Substance: CAPECITABINE
     Indication: Anal cancer stage II
     Dosage: 1,000 MG IN MORNING, 2,000 MG IN EVENING
     Route: 048
  2. MITOMYCIN [Concomitant]
     Active Substance: MITOMYCIN
     Indication: Anal cancer stage II
  3. CAPECITABINE [Suspect]
     Active Substance: CAPECITABINE
     Indication: Anal squamous cell carcinoma
     Dosage: 1,000 MG IN MORNING, 2,000 MG IN EVENING
     Route: 048
  4. CAPECITABINE [Suspect]
     Active Substance: CAPECITABINE
     Indication: Anal papilloma
     Dosage: 1,000 MG IN MORNING, 2,000 MG IN EVENING
     Route: 048
  5. CAPECITABINE [Suspect]
     Active Substance: CAPECITABINE
     Indication: Papilloma
     Dosage: 1,000 MG IN MORNING, 2,000 MG IN EVENING
     Route: 048
  6. MITOMYCIN [Concomitant]
     Active Substance: MITOMYCIN
     Indication: Anal squamous cell carcinoma
  7. MITOMYCIN [Concomitant]
     Active Substance: MITOMYCIN
     Indication: Anal papilloma
  8. MITOMYCIN [Concomitant]
     Active Substance: MITOMYCIN
     Indication: Papilloma

REACTIONS (3)
  - Arteriospasm coronary [Recovered/Resolved]
  - Myocardial infarction [Unknown]
  - Off label use [Unknown]
